FAERS Safety Report 18982680 (Version 2)
Quarter: 2021Q2

REPORT INFORMATION
  Report Type: Spontaneous
  Country: US (occurrence: US)
  Receive Date: 20210308
  Receipt Date: 20210405
  Transmission Date: 20210717
  Serious: Yes (Hospitalization, Other)
  Sender: FDA-Public Use
  Company Number: US-009507513-2103USA001013

PATIENT
  Age: 57 Year
  Sex: Male
  Weight: 81.5 kg

DRUGS (1)
  1. KEYTRUDA [Suspect]
     Active Substance: PEMBROLIZUMAB
     Indication: MESOTHELIOMA MALIGNANT
     Dosage: UNK
     Dates: end: 202012

REACTIONS (7)
  - Anaphylactic reaction [Recovered/Resolved]
  - COVID-19 pneumonia [Recovering/Resolving]
  - Product use in unapproved indication [Unknown]
  - Pleural effusion [Unknown]
  - Haemoptysis [Recovered/Resolved]
  - Acute respiratory failure [Recovering/Resolving]
  - Radiation pneumonitis [Unknown]

NARRATIVE: CASE EVENT DATE: 202012
